FAERS Safety Report 4879030-1 (Version None)
Quarter: 2006Q1

REPORT INFORMATION
  Report Type: 
  Country: None (occurrence: None)
  Receive Date: 20060110
  Receipt Date: 20060110
  Transmission Date: 20060701
  Serious: Yes (Hospitalization, Other)
  Sender: FDA-Public Use
  Company Number: None

PATIENT
  Sex: Female
  Weight: 76.8 kg

DRUGS (4)
  1. MERCAPTOPURINE [Suspect]
     Indication: ACUTE LYMPHOCYTIC LEUKAEMIA
     Dosage: SEE IMAGE
     Route: 048
     Dates: end: 20051226
  2. MERCAPTOPURINE [Suspect]
     Indication: ACUTE LYMPHOCYTIC LEUKAEMIA
     Dosage: SEE IMAGE
     Route: 048
     Dates: start: 20051115
  3. METHOTREXATE [Suspect]
     Dosage: SEE IMAGE
     Route: 048
     Dates: end: 20051220
  4. VINCRISTINE SULFATE [Suspect]
     Dosage: SEE IMAGE
     Route: 042
     Dates: end: 20051213

REACTIONS (5)
  - HEADACHE [None]
  - NAUSEA [None]
  - PHOTOPHOBIA [None]
  - RASH VESICULAR [None]
  - VOMITING [None]
